FAERS Safety Report 8536626-3 (Version None)
Quarter: 2012Q3

REPORT INFORMATION
  Report Type: 
  Country: None (occurrence: None)
  Receive Date: 20120725
  Receipt Date: 20120716
  Transmission Date: 20120928
  Serious: Yes (Other)
  Sender: FDA-Public Use
  Company Number: FR-ASTRAZENECA-2012SE50022

PATIENT
  Age: 744 Month
  Sex: Female

DRUGS (3)
  1. ATACAND [Suspect]
     Route: 048
     Dates: start: 20120511, end: 20120601
  2. XYZAL [Concomitant]
     Route: 048
  3. SYMBICORT [Concomitant]
     Route: 055

REACTIONS (3)
  - MUSCLE CONTRACTURE [None]
  - PYREXIA [None]
  - CYTOLYTIC HEPATITIS [None]
